FAERS Safety Report 21852010 (Version 3)
Quarter: 2023Q1

REPORT INFORMATION
  Report Type: Report from Study
  Country: CN (occurrence: None)
  Receive Date: 20230112
  Receipt Date: 20230307
  Transmission Date: 20230418
  Serious: Yes (Hospitalization)
  Sender: FDA-Public Use
  Company Number: CN-ROCHE-3254504

PATIENT
  Age: 68 Year
  Sex: Male
  Weight: 62 kg

DRUGS (13)
  1. ALECTINIB [Suspect]
     Active Substance: ALECTINIB
     Indication: Non-small cell lung cancer
     Dosage: DOSE LAST STUDY DRUG ADMINISTERED PRIOR TO AE WAS 600 MG RECEIVED ON 28/DEC/2022
     Route: 048
     Dates: start: 20170309
  2. DICLOFENAC SODIUM [Concomitant]
     Active Substance: DICLOFENAC SODIUM
     Indication: Pyrexia
     Route: 048
     Dates: start: 20221225, end: 20221227
  3. IBUPROFEN [Concomitant]
     Active Substance: IBUPROFEN
     Indication: Pyrexia
     Dates: start: 20221228, end: 20221228
  4. ESSENTIALE [Concomitant]
     Indication: Blood bilirubin increased
     Dates: start: 20190110, end: 20221228
  5. METHYLPREDNISOLONE [Concomitant]
     Active Substance: METHYLPREDNISOLONE
     Indication: COVID-19
     Dates: start: 20221229, end: 20230109
  6. CEFUROXIME [Concomitant]
     Active Substance: CEFUROXIME
     Indication: COVID-19
     Dates: start: 20221229, end: 20230109
  7. KCL [Concomitant]
     Active Substance: POTASSIUM CHLORIDE
     Indication: Hypokalaemia
     Dates: start: 20221229, end: 20230109
  8. POTASSIUM CITRATE [Concomitant]
     Active Substance: POTASSIUM CITRATE
     Indication: Hypokalaemia
     Dates: start: 20221230, end: 20230109
  9. PANTOPRAZOLE SODIUM [Concomitant]
     Active Substance: PANTOPRAZOLE SODIUM
     Indication: COVID-19
     Dates: start: 20221229, end: 20230109
  10. AMBROXOL [Concomitant]
     Active Substance: AMBROXOL
     Indication: Productive cough
     Dates: start: 20230101, end: 20230109
  11. NADROPARIN CALCIUM [Concomitant]
     Active Substance: NADROPARIN CALCIUM
     Dates: start: 20230103, end: 20230109
  12. EUCALYPTOL LIMONENE PINENE [Concomitant]
     Indication: Cough
     Dates: start: 20230109
  13. GUAIFENESIN [Concomitant]
     Active Substance: GUAIFENESIN
     Indication: Cough
     Dates: start: 20230109

REACTIONS (1)
  - COVID-19 [Recovered/Resolved]

NARRATIVE: CASE EVENT DATE: 20221225
